FAERS Safety Report 7519457-2 (Version None)
Quarter: 2011Q2

REPORT INFORMATION
  Report Type: 
  Country: None (occurrence: None)
  Receive Date: 20110602
  Receipt Date: 20110524
  Transmission Date: 20111010
  Serious: Yes (Hospitalization)
  Sender: FDA-Public Use
  Company Number: US-ASTRAZENECA-2011SE31942

PATIENT
  Age: 69 Year
  Sex: Female

DRUGS (1)
  1. NEXIUM [Suspect]
     Route: 048

REACTIONS (6)
  - UPPER LIMB FRACTURE [None]
  - FOOT FRACTURE [None]
  - JOINT ARTHROPLASTY [None]
  - OSTEOPOROSIS [None]
  - PROSTHESIS IMPLANTATION [None]
  - FALL [None]
